FAERS Safety Report 4614656-1 (Version None)
Quarter: 2005Q2

REPORT INFORMATION
  Report Type: 
  Country: None (occurrence: None)
  Receive Date: 20050311
  Receipt Date: 20041130
  Transmission Date: 20051028
  Serious: No
  Sender: FDA-Public Use
  Company Number: 2004-BP-13030BP

PATIENT
  Age: 70 Year
  Sex: Female

DRUGS (6)
  1. SPIRIVA [Suspect]
     Indication: CHRONIC OBSTRUCTIVE PULMONARY DISEASE
     Dosage: 18 MCG (18 MCG), IH
     Route: 055
     Dates: start: 20040802, end: 20041124
  2. SPIRIVA [Suspect]
     Indication: CHRONIC OBSTRUCTIVE PULMONARY DISEASE
     Dosage: 18 MCG (18 MCG), IH
     Route: 055
     Dates: start: 20040802, end: 20041124
  3. TYLENOL [Concomitant]
  4. PRILOSEC [Concomitant]
  5. ALBUTEROL [Concomitant]
  6. OXYGEN (OXYGEN) [Concomitant]

REACTIONS (3)
  - CONJUNCTIVITIS [None]
  - FATIGUE [None]
  - PAIN [None]
